FAERS Safety Report 9129724 (Version 1)
Quarter: 2013Q1

REPORT INFORMATION
  Report Type: Spontaneous
  Country: US (occurrence: US)
  Receive Date: 20130228
  Receipt Date: 20130228
  Transmission Date: 20140127
  Serious: No
  Sender: FDA-Public Use
  Company Number: US-PFIZER INC-2013071655

PATIENT
  Sex: Female

DRUGS (8)
  1. LYRICA [Suspect]
     Dosage: UNK
  2. AMBIEN [Suspect]
     Dosage: UNK
  3. LEVAQUIN [Suspect]
     Dosage: UNK
  4. NAMENDA [Suspect]
     Dosage: UNK
  5. OXYCONTIN [Suspect]
     Dosage: UNK
  6. PHENERGAN [Suspect]
     Dosage: UNK
  7. ZANAFLEX [Suspect]
     Dosage: UNK
  8. PENICILLIN NOS [Suspect]

REACTIONS (1)
  - Drug hypersensitivity [Unknown]
